FAERS Safety Report 7829238-8 (Version None)
Quarter: 2011Q4

REPORT INFORMATION
  Report Type: 
  Country: None (occurrence: None)
  Receive Date: 20111020
  Receipt Date: 20111017
  Transmission Date: 20120403
  Serious: Yes (Other)
  Sender: FDA-Public Use
  Company Number: JP-PFIZER INC-2011250036

PATIENT
  Age: 75 Year
  Sex: Female

DRUGS (3)
  1. FLUMAZENIL [Suspect]
     Dosage: UNK
  2. IMATINIB [Concomitant]
     Indication: CHRONIC MYELOID LEUKAEMIA
     Dosage: UNK
  3. HYOSCINE BUTYLBROMIDE [Suspect]
     Dosage: UNK

REACTIONS (1)
  - AGRANULOCYTOSIS [None]
